FAERS Safety Report 7637211-8 (Version None)
Quarter: 2011Q3

REPORT INFORMATION
  Report Type: 
  Country: None (occurrence: None)
  Receive Date: 20110726
  Receipt Date: 20110721
  Transmission Date: 20111222
  Serious: Yes (Life-Threatening, Hospitalization, Other)
  Sender: FDA-Public Use
  Company Number: PHHY2011JP55880

PATIENT
  Sex: Female
  Weight: 56 kg

DRUGS (11)
  1. STEROIDS NOS [Concomitant]
     Indication: NEPHROTIC SYNDROME
  2. NEORAL [Suspect]
     Indication: NEPHROTIC SYNDROME
     Dosage: 150 MG, UNK
     Route: 048
     Dates: start: 20000501
  3. ALENDRONATE SODIUM [Concomitant]
     Indication: OSTEOPOROSIS
     Dosage: 35 MG, UNK
     Route: 048
     Dates: start: 20080206, end: 20100602
  4. HUMULIN N [Concomitant]
     Indication: DIABETES MELLITUS
     Dosage: 22 IU, UNK
     Route: 058
     Dates: start: 20100531
  5. BREDININ [Suspect]
     Indication: NEPHROTIC SYNDROME
     Dosage: 150 MG, UNK
     Route: 048
     Dates: start: 20090311, end: 20100602
  6. LOCHOLEST [Concomitant]
     Indication: HYPERLIPIDAEMIA
     Dosage: 60 MG, UNK
     Route: 048
     Dates: start: 20070628
  7. HUMULIN R [Concomitant]
     Indication: DIABETES MELLITUS
     Dosage: 58 IU, UNK
     Route: 058
     Dates: start: 20070531
  8. PREDNISOLONE [Suspect]
     Indication: NEPHROTIC SYNDROME
     Dosage: 35 MG, UNK
     Route: 048
     Dates: start: 19980101
  9. LASIX [Concomitant]
     Indication: NEPHROTIC SYNDROME
     Dosage: 80 MG, UNK
     Route: 048
     Dates: start: 20060906
  10. PREDNISOLONE [Suspect]
     Indication: NEPHROTIC SYNDROME
     Dosage: 2 MG, UNK
     Route: 048
     Dates: start: 19980101
  11. SLOW-K [Concomitant]
     Indication: NEPHROTIC SYNDROME
     Dosage: 1200 MG, UNK
     Route: 048
     Dates: start: 20071130

REACTIONS (22)
  - ESCHERICHIA INFECTION [None]
  - HYPOTENSION [None]
  - LARGE INTESTINE PERFORATION [None]
  - SKIN ULCER [None]
  - C-REACTIVE PROTEIN INCREASED [None]
  - BLOOD ALBUMIN DECREASED [None]
  - NECROTISING FASCIITIS [None]
  - ABDOMINAL PAIN [None]
  - SKIN DISCOLOURATION [None]
  - PLATELET COUNT DECREASED [None]
  - POSTOPERATIVE ABSCESS [None]
  - PURPURA [None]
  - SKIN INFECTION [None]
  - IMPAIRED HEALING [None]
  - ANAEMIA [None]
  - WHITE BLOOD CELL COUNT INCREASED [None]
  - BLOOD LACTATE DEHYDROGENASE INCREASED [None]
  - PROTEIN TOTAL DECREASED [None]
  - HEART RATE INCREASED [None]
  - NEPHROTIC SYNDROME [None]
  - SKIN ATROPHY [None]
  - BLISTER [None]
